FAERS Safety Report 6767807-7 (Version None)
Quarter: 2010Q2

REPORT INFORMATION
  Report Type: 
  Country: None (occurrence: None)
  Receive Date: 20100614
  Receipt Date: 20100607
  Transmission Date: 20101027
  Serious: Yes (Life-Threatening, Other)
  Sender: FDA-Public Use
  Company Number: PHHY2010US37169

PATIENT
  Sex: Female
  Weight: 218 kg

DRUGS (4)
  1. VIVELLE-DOT [Suspect]
     Indication: MENOPAUSE
     Dosage: 0.5 MG TWICE PER WEEK
     Route: 062
     Dates: start: 20071211, end: 20100601
  2. CYMBALTA [Concomitant]
  3. MORPHINE [Concomitant]
  4. LORAZEPAM [Concomitant]

REACTIONS (20)
  - ANXIETY [None]
  - BEDRIDDEN [None]
  - BLINDNESS [None]
  - CHROMATURIA [None]
  - DECREASED APPETITE [None]
  - EATING DISORDER [None]
  - FEELING ABNORMAL [None]
  - FIBROMYALGIA [None]
  - GAIT DISTURBANCE [None]
  - INFECTION [None]
  - INSOMNIA [None]
  - NAUSEA [None]
  - NECK PAIN [None]
  - PAIN [None]
  - PAIN IN EXTREMITY [None]
  - RASH [None]
  - SWELLING [None]
  - TOOTHACHE [None]
  - TREMOR [None]
  - WEIGHT DECREASED [None]
